FAERS Safety Report 9686128 (Version 1)
Quarter: 2013Q4

REPORT INFORMATION
  Report Type: Spontaneous
  Country: CN (occurrence: CN)
  Receive Date: 20131113
  Receipt Date: 20131113
  Transmission Date: 20140711
  Serious: Yes (Death, Other)
  Sender: FDA-Public Use
  Company Number: PHHY2013CN128664

PATIENT
  Age: 48 Year
  Sex: Male

DRUGS (9)
  1. CICLOSPORIN [Suspect]
     Indication: PROPHYLAXIS AGAINST TRANSPLANT REJECTION
     Dosage: 10 MG/KG, PER DAY, 2 DIVIDED DOSES
     Route: 048
  2. CICLOSPORIN [Suspect]
     Indication: IMMUNOSUPPRESSION
  3. METHYLPREDNISOLONE [Suspect]
     Indication: PROPHYLAXIS AGAINST TRANSPLANT REJECTION
     Dosage: 1000 MG, UNK
     Route: 042
  4. METHYLPREDNISOLONE [Suspect]
     Indication: IMMUNOSUPPRESSION
     Dosage: 500 MG, QD
     Route: 042
  5. MYCOPHENOLATE MOFETIL [Suspect]
     Indication: PROPHYLAXIS AGAINST TRANSPLANT REJECTION
  6. MYCOPHENOLATE MOFETIL [Suspect]
     Indication: IMMUNOSUPPRESSION
  7. METHYLPREDNISOLONE [Suspect]
     Indication: PROPHYLAXIS AGAINST TRANSPLANT REJECTION
     Dosage: 24 MG, QD
     Route: 048
  8. METHYLPREDNISOLONE [Suspect]
     Indication: IMMUNOSUPPRESSION
     Dosage: 8 MG, PER DAY
  9. BASILIXIMAB [Concomitant]
     Indication: IMMUNOMODULATORY THERAPY
     Dosage: 20 MG
     Route: 042

REACTIONS (3)
  - Death [Fatal]
  - Hepatic neoplasm [Unknown]
  - Malignant neoplasm progression [Unknown]
